FAERS Safety Report 19563571 (Version 3)
Quarter: 2021Q3

REPORT INFORMATION
  Report Type: Spontaneous
  Country: US (occurrence: US)
  Receive Date: 20210715
  Receipt Date: 20210826
  Transmission Date: 20211014
  Serious: Yes (Other)
  Sender: FDA-Public Use
  Company Number: US-PFIZER INC-2021832362

PATIENT
  Age: 70 Year

DRUGS (1)
  1. DETROL LA [Suspect]
     Active Substance: TOLTERODINE TARTRATE
     Dosage: UNK
     Dates: start: 2004

REACTIONS (5)
  - Malaise [Unknown]
  - Bradyphrenia [Unknown]
  - Grief reaction [Unknown]
  - Mental impairment [Unknown]
  - Hypoacusis [Unknown]
